FAERS Safety Report 25163330 (Version 1)
Quarter: 2025Q2

REPORT INFORMATION
  Report Type: Spontaneous
  Country: FR (occurrence: FR)
  Receive Date: 20250404
  Receipt Date: 20250404
  Transmission Date: 20250717
  Serious: Yes (Hospitalization, Other)
  Sender: RECKITT BENCKISER
  Company Number: None

PATIENT

DRUGS (3)
  1. SUBUTEX [Suspect]
     Active Substance: BUPRENORPHINE HYDROCHLORIDE
     Indication: Product used for unknown indication
     Dosage: 8 MILLIGRAM, TID
     Route: 042
     Dates: start: 2002
  2. NICOTINE [Suspect]
     Active Substance: NICOTINE
     Indication: Product used for unknown indication
     Dosage: UNK, QD
     Dates: start: 1993
  3. ALCOHOL [Suspect]
     Active Substance: ALCOHOL
     Indication: Product used for unknown indication
     Dosage: 1-2 US EVERY TWO DAYS
     Route: 048
     Dates: start: 1999

REACTIONS (8)
  - Thrombophlebitis septic [Recovering/Resolving]
  - Septic shock [Recovered/Resolved]
  - Product use issue [Recovered/Resolved]
  - Cachexia [Recovering/Resolving]
  - Musculoskeletal stiffness [Recovering/Resolving]
  - Bacteraemia [Recovering/Resolving]
  - Drug abuse [Recovering/Resolving]
  - Inappropriate schedule of product administration [Unknown]

NARRATIVE: CASE EVENT DATE: 20020101
